FAERS Safety Report 9353232 (Version 1)
Quarter: 2013Q2

REPORT INFORMATION
  Report Type: Spontaneous
  Country: US (occurrence: US)
  Receive Date: 20130618
  Receipt Date: 20130618
  Transmission Date: 20140414
  Serious: No
  Sender: FDA-Public Use
  Company Number: US-PFIZER INC-2013178956

PATIENT
  Age: 75 Year
  Sex: Male
  Weight: 102 kg

DRUGS (8)
  1. SUTENT [Suspect]
     Dosage: 37.5 MG, 1X/DAY
     Route: 048
     Dates: start: 20130115
  2. GLIPIZIDE [Concomitant]
     Dosage: UNK
  3. NIFEDIPINE [Concomitant]
     Dosage: UNK
  4. FENOFIBRATE [Concomitant]
     Dosage: UNK
  5. METOPROLOL [Concomitant]
     Dosage: UNK
  6. NIASPAN [Concomitant]
     Dosage: UNK
  7. ASPIRIN ^BAYER^ [Concomitant]
     Dosage: UNK
  8. ATORVASTATIN [Concomitant]
     Dosage: UNK

REACTIONS (5)
  - Diarrhoea [Not Recovered/Not Resolved]
  - Nausea [Not Recovered/Not Resolved]
  - Dysgeusia [Not Recovered/Not Resolved]
  - Fatigue [Not Recovered/Not Resolved]
  - Abdominal pain upper [Not Recovered/Not Resolved]
